FAERS Safety Report 25286654 (Version 1)
Quarter: 2025Q2

REPORT INFORMATION
  Report Type: Spontaneous
  Country: US (occurrence: US)
  Receive Date: 20250509
  Receipt Date: 20250509
  Transmission Date: 20250716
  Serious: No
  Sender: EISAI
  Company Number: US-Eisai-EC-2025-188582

PATIENT
  Sex: Female

DRUGS (1)
  1. LEQEMBI [Suspect]
     Active Substance: LECANEMAB-IRMB
     Indication: Product used for unknown indication
     Dates: start: 20241017, end: 20250409

REACTIONS (3)
  - Headache [Not Recovered/Not Resolved]
  - Amyloid related imaging abnormality-oedema/effusion [Not Recovered/Not Resolved]
  - Medical device pain [Unknown]

NARRATIVE: CASE EVENT DATE: 20241001
